FAERS Safety Report 9100326 (Version 2)
Quarter: 2013Q2

REPORT INFORMATION
  Report Type: Spontaneous
  Country: AT (occurrence: AT)
  Receive Date: 20130215
  Receipt Date: 20130419
  Transmission Date: 20140414
  Serious: Yes (Other)
  Sender: FDA-Public Use
  Company Number: AT-PFIZER INC-2013058634

PATIENT
  Age: 61 Year
  Sex: Female
  Weight: 63 kg

DRUGS (2)
  1. HALCION [Suspect]
     Indication: SLEEP DISORDER
     Dosage: 0.25 MG, 1X/DAY
     Dates: start: 200804, end: 201301
  2. CIPRALEX [Suspect]
     Indication: DEPRESSION
     Dosage: 5 MG, 1X/DAY
     Dates: start: 200612, end: 201301

REACTIONS (2)
  - Amnesia [Recovered/Resolved]
  - Hyponatraemia [Recovered/Resolved]
